FAERS Safety Report 19256188 (Version 1)
Quarter: 2021Q2

REPORT INFORMATION
  Report Type: Report from Study
  Country: JP (occurrence: JP)
  Receive Date: 20210513
  Receipt Date: 20210513
  Transmission Date: 20210717
  Serious: Yes (Hospitalization)
  Sender: FDA-Public Use
  Company Number: JP-TEVA-2021-JP-1910059

PATIENT
  Age: 53 Year
  Sex: Male

DRUGS (4)
  1. ADRIAMYCIN [Concomitant]
     Active Substance: DOXORUBICIN HYDROCHLORIDE
     Indication: ANAPLASTIC LARGE-CELL LYMPHOMA
     Route: 065
  2. PREDNISOLONE. [Suspect]
     Active Substance: PREDNISOLONE
     Indication: ANAPLASTIC LARGE-CELL LYMPHOMA
     Route: 065
  3. BRENTUXIMAB?VEDOTIN [Concomitant]
     Active Substance: BRENTUXIMAB VEDOTIN
     Indication: ANAPLASTIC LARGE-CELL LYMPHOMA
     Route: 065
  4. CYCLOPHOSPHAMIDE. [Concomitant]
     Active Substance: CYCLOPHOSPHAMIDE
     Indication: ANAPLASTIC LARGE-CELL LYMPHOMA
     Route: 065

REACTIONS (1)
  - COVID-19 [Unknown]
